FAERS Safety Report 8792892 (Version 1)
Quarter: 2012Q4

REPORT INFORMATION
  Report Type: 
  Country: IN (occurrence: IN)
  Receive Date: 20120918
  Receipt Date: 20120918
  Transmission Date: 20130627
  Serious: Yes (Disabling, Other)
  Sender: FDA-Public Use
  Company Number: IN-BAYER-2012-094785

PATIENT
  Sex: Male

DRUGS (1)
  1. NEXAVAR 200 MG TABLET [Suspect]
     Indication: HEPATIC NEOPLASM MALIGNANT
     Dosage: UNK

REACTIONS (1)
  - Vocal cord paralysis [None]
